FAERS Safety Report 18904814 (Version 4)
Quarter: 2021Q2

REPORT INFORMATION
  Report Type: Report from Study
  Country: GB (occurrence: GB)
  Receive Date: 20210217
  Receipt Date: 20210624
  Transmission Date: 20210717
  Serious: Yes (Hospitalization)
  Sender: FDA-Public Use
  Company Number: GB-ACCORD-217373

PATIENT
  Age: 76 Year
  Sex: Male
  Weight: 81 kg

DRUGS (28)
  1. BEVACIZUMAB. [Suspect]
     Active Substance: BEVACIZUMAB
     Indication: NON-SMALL CELL LUNG CANCER
     Route: 065
     Dates: start: 20191216
  2. TINZAPARIN/TINZAPARIN SODIUM [Concomitant]
     Active Substance: TINZAPARIN SODIUM
     Indication: PROPHYLAXIS
     Route: 065
     Dates: start: 20200518, end: 20200608
  3. CODEINE LINCTUS [Concomitant]
     Active Substance: CHLOROFORM\CODEINE PHOSPHATE\DRIMIA MARITIMA BULB
     Indication: COUGH
     Route: 065
     Dates: start: 20191001
  4. PANTOPRAZOLE [Concomitant]
     Active Substance: PANTOPRAZOLE
     Dosage: UNK, DAILY
     Route: 065
     Dates: start: 20200519, end: 20200528
  5. AMOXICILLIN SODIUM/CLAVULANATE POTASSIUM [Concomitant]
     Active Substance: AMOXICILLIN\CLAVULANATE POTASSIUM
     Dosage: EVERY 0.5 DAY
     Route: 048
     Dates: start: 20200518
  6. CARBOPLATIN. [Suspect]
     Active Substance: CARBOPLATIN
     Indication: NON-SMALL CELL LUNG CANCER
     Route: 065
  7. BECLOMETASONE [Concomitant]
     Active Substance: BECLOMETHASONE DIPROPIONATE
     Dosage: UNK EVERY 0.5 DAY
     Route: 065
     Dates: start: 20200520, end: 20200608
  8. LAXIDO [Concomitant]
     Active Substance: POLYETHYLENE GLYCOL 3350\POTASSIUM CHLORIDE\SODIUM BICARBONATE\SODIUM CHLORIDE
     Indication: CONSTIPATION
     Route: 065
     Dates: start: 20190201
  9. PREDNISOLONE. [Concomitant]
     Active Substance: PREDNISOLONE
     Route: 065
     Dates: start: 20200518, end: 20200528
  10. SODIUM CHLORIDE. [Concomitant]
     Active Substance: SODIUM CHLORIDE
     Indication: PROPHYLAXIS
     Route: 065
     Dates: start: 20200518, end: 20200518
  11. CALCICHEW D3 FORTE [Concomitant]
     Active Substance: CALCIUM\CHOLECALCIFEROL
     Dosage: AUTHORISATION / APPLICATION NUMBER: PLPI 20636/1121
     Route: 065
     Dates: start: 20200520, end: 20200608
  12. PARACETAMOL [Concomitant]
     Active Substance: ACETAMINOPHEN
     Indication: CHEST PAIN
     Dosage: UNK EVERY 0.25 DAY
     Route: 065
     Dates: start: 20200518, end: 20200608
  13. PREDNISOLONE. [Concomitant]
     Active Substance: PREDNISOLONE
     Indication: DYSPNOEA
     Route: 065
     Dates: start: 20190701
  14. METHYLPREDNISOLONE. [Concomitant]
     Active Substance: METHYLPREDNISOLONE
     Route: 065
     Dates: start: 20200519
  15. TAZOCIN [Concomitant]
     Active Substance: PIPERACILLIN SODIUM\TAZOBACTAM SODIUM
     Dosage: UNK EVERY 0.25 DAYS
     Route: 042
     Dates: start: 20200518, end: 20200521
  16. SULFAMETHOXAZOLE/TRIMETHOPRIM [Concomitant]
     Active Substance: SULFAMETHOXAZOLE\TRIMETHOPRIM
     Indication: PROPHYLAXIS
     Route: 065
     Dates: start: 20200518, end: 20200520
  17. METHYLPREDNISOLONE. [Concomitant]
     Active Substance: METHYLPREDNISOLONE
     Route: 065
     Dates: start: 20200518, end: 20200518
  18. PARACETAMOL [Concomitant]
     Active Substance: ACETAMINOPHEN
     Indication: ABDOMINAL PAIN
     Route: 065
     Dates: start: 20200319
  19. PARACETAMOL [Concomitant]
     Active Substance: ACETAMINOPHEN
     Indication: HEADACHE
     Route: 065
  20. ATEZOLIZUMAB. [Suspect]
     Active Substance: ATEZOLIZUMAB
     Indication: NON-SMALL CELL LUNG CANCER
     Dosage: PATIENT RECEIVED SAME DOSE OF ATEZOLIZUMAB INFUSION ON 10/FEB/2020, 02/MAR/2020, 23/MAR/2020, 14/APR
     Route: 041
     Dates: start: 20191216
  21. PREDNISOLONE. [Concomitant]
     Active Substance: PREDNISOLONE
     Route: 065
     Dates: start: 20200414
  22. PACLITAXEL/PACLITAXEL LIPOSOME [Suspect]
     Active Substance: PACLITAXEL
     Indication: NON-SMALL CELL LUNG CANCER
     Route: 065
  23. BUSCOPAN [Concomitant]
     Active Substance: BUTYLSCOPOLAMINE BROMIDE
     Indication: ABDOMINAL PAIN
     Route: 065
     Dates: start: 20200305
  24. COLECALCIFEROL [Concomitant]
     Active Substance: CHOLECALCIFEROL
     Indication: FATIGUE
     Route: 065
  25. GLUCOSAMINE [Concomitant]
     Active Substance: GLUCOSAMINE
     Indication: FATIGUE
     Dosage: UNK, EVERY 0.5 DAY
     Route: 065
  26. IMODIUM [Concomitant]
     Active Substance: LOPERAMIDE HYDROCHLORIDE
     Indication: DIARRHOEA
     Route: 065
     Dates: start: 20200318
  27. PANTOPRAZOLE [Concomitant]
     Active Substance: PANTOPRAZOLE
     Indication: DYSPNOEA
     Dosage: UNK EVERY 0.5 DAY
     Route: 065
     Dates: start: 20181201
  28. AMOXYCILLIN/POTASSIUM CLAVULANATE [Concomitant]
     Active Substance: AMOXICILLIN\CLAVULANATE POTASSIUM
     Dosage: EVERY 0.33 DAY
     Route: 048
     Dates: start: 20200527

REACTIONS (5)
  - Dysuria [Recovered/Resolved]
  - Pyrexia [Recovered/Resolved]
  - Diarrhoea [Recovered/Resolved]
  - Decubitus ulcer [Not Recovered/Not Resolved]
  - Abdominal pain [Recovered/Resolved]

NARRATIVE: CASE EVENT DATE: 20191216
